FAERS Safety Report 6438183-4 (Version None)
Quarter: 2009Q4

REPORT INFORMATION
  Report Type: 
  Country: None (occurrence: None)
  Receive Date: 20091112
  Receipt Date: 20091030
  Transmission Date: 20100525
  Serious: Yes (Other)
  Sender: FDA-Public Use
  Company Number: KR-PFIZER INC-2009291314

PATIENT
  Age: 21 Year
  Sex: Female

DRUGS (4)
  1. ZIPRASIDONE HCL [Suspect]
  2. RISPERIDONE [Suspect]
     Indication: PSYCHOTIC DISORDER
     Dosage: 4 MG/DAY
  3. ARIPIPRAZOLE [Suspect]
  4. AMISULPRIDE [Suspect]

REACTIONS (7)
  - AGITATION [None]
  - AMENORRHOEA [None]
  - INSOMNIA [None]
  - NAUSEA [None]
  - OBSESSIVE RUMINATION [None]
  - TARDIVE DYSKINESIA [None]
  - WEIGHT INCREASED [None]
